FAERS Safety Report 20568754 (Version 3)
Quarter: 2022Q2

REPORT INFORMATION
  Report Type: Spontaneous
  Country: DE (occurrence: DE)
  Receive Date: 20220308
  Receipt Date: 20220411
  Transmission Date: 20220721
  Serious: Yes (Other)
  Sender: FDA-Public Use
  Company Number: DE-GILEAD-2022-0572373

PATIENT
  Sex: Female

DRUGS (6)
  1. TRODELVY [Suspect]
     Active Substance: SACITUZUMAB GOVITECAN-HZIY
     Indication: Product used for unknown indication
     Dosage: UNK, STARTING CYCLE 1 DAY 1
     Route: 065
  2. TRODELVY [Suspect]
     Active Substance: SACITUZUMAB GOVITECAN-HZIY
     Dosage: UNK, 6TH OR 7TH CYCLE
     Route: 065
  3. GRANISETRON [Concomitant]
     Active Substance: GRANISETRON
     Dosage: 1.00MG NACL 0.9% 100ML INFUSION 10MIN
     Route: 042
  4. CIMETIDINE [Concomitant]
     Active Substance: CIMETIDINE
     Dosage: 200.00MG NACL 0.9% 100ML INFUSION 10MIN
     Route: 042
  5. DIMETHINDENE [Concomitant]
     Active Substance: DIMETHINDENE
     Dosage: 4.00MG NACL 0.9% 100ML INFUSION 10MIN
     Route: 042
  6. DEXAMETHASONE [Concomitant]
     Active Substance: DEXAMETHASONE
     Dosage: 8.00MG NACL 0.9% 100ML INFUSION 10MIN
     Route: 042

REACTIONS (1)
  - Genital abscess [Unknown]
